FAERS Safety Report 23627424 (Version 1)
Quarter: 2024Q1

REPORT INFORMATION
  Report Type: Spontaneous
  Country: US (occurrence: US)
  Receive Date: 20240313
  Receipt Date: 20240313
  Transmission Date: 20240409
  Serious: No
  Sender: FDA-Public Use
  Company Number: US-PLX PHARMA INC-2023PLX000009

PATIENT

DRUGS (1)
  1. VAZALORE [Suspect]
     Active Substance: ASPIRIN
     Indication: Product used for unknown indication
     Dosage: 81 MILLIGRAM AS DIRECTED
     Route: 048

REACTIONS (1)
  - Urinary incontinence [Not Recovered/Not Resolved]
